FAERS Safety Report 21710325 (Version 2)
Quarter: 2022Q4

REPORT INFORMATION
  Report Type: Spontaneous
  Country: BE (occurrence: BE)
  Receive Date: 20221211
  Receipt Date: 20221221
  Transmission Date: 20230113
  Serious: Yes (Hospitalization)
  Sender: FDA-Public Use
  Company Number: BE-BAYER-2022A167276

PATIENT
  Age: 75 Year
  Sex: Male

DRUGS (10)
  1. XARELTO [Suspect]
     Active Substance: RIVAROXABAN
     Indication: Thrombosis prophylaxis
     Dosage: 20 MG, QD
     Route: 048
     Dates: start: 20200701, end: 20220721
  2. XARELTO [Suspect]
     Active Substance: RIVAROXABAN
     Indication: Thrombosis prophylaxis
     Dosage: 20 MG, QD
     Route: 048
     Dates: start: 20220801
  3. ATORVASTATIN [Concomitant]
     Active Substance: ATORVASTATIN
     Indication: Hypercholesterolaemia
     Dosage: 20 MG, QD
     Route: 048
     Dates: start: 20170921
  4. PERINDOPRIL [Concomitant]
     Active Substance: PERINDOPRIL
     Indication: Hypertension
     Dosage: 10 MG, QD
     Route: 048
     Dates: start: 20190613
  5. BISOPROLOL [Concomitant]
     Active Substance: BISOPROLOL
     Indication: Hypertension
     Dosage: 5 MG, QD
     Route: 048
     Dates: start: 20180306
  6. EPLERENONE [Concomitant]
     Active Substance: EPLERENONE
     Indication: Cardiac failure
     Dosage: 25 MG, QD
     Route: 048
     Dates: start: 20191223
  7. BUMETANIDE [Concomitant]
     Active Substance: BUMETANIDE
     Indication: Cardiac failure
     Dosage: 1 MG, QD
     Route: 048
     Dates: start: 20210607
  8. TRELEGY ELLIPTA [Concomitant]
     Active Substance: FLUTICASONE FUROATE\UMECLIDINIUM BROMIDE\VILANTEROL TRIFENATATE
     Indication: Chronic obstructive pulmonary disease
     Dosage: 92/55/22 MCG
     Route: 055
     Dates: start: 20211112
  9. FLUTICASONE FUROATE\VILANTEROL TRIFENATATE [Concomitant]
     Active Substance: FLUTICASONE FUROATE\VILANTEROL TRIFENATATE
     Dosage: 92-22 MCG DAILY
     Route: 055
  10. IBUPROFEN [Concomitant]
     Active Substance: IBUPROFEN
     Dosage: UNK
     Dates: start: 202207

REACTIONS (4)
  - Mallory-Weiss syndrome [Recovered/Resolved]
  - Abdominal pain [Unknown]
  - Haematemesis [Unknown]
  - Diarrhoea [Unknown]

NARRATIVE: CASE EVENT DATE: 20220721
